FAERS Safety Report 25745882 (Version 1)
Quarter: 2025Q3

REPORT INFORMATION
  Report Type: Other
  Country: GB (occurrence: GB)
  Receive Date: 20250901
  Receipt Date: 20250901
  Transmission Date: 20251020
  Serious: Yes (Other)
  Sender: MACLEODS
  Company Number: None

PATIENT

DRUGS (2)
  1. ARIPIPRAZOLE [Suspect]
     Active Substance: ARIPIPRAZOLE
     Indication: Product used for unknown indication
     Dosage: 5MG ONCE A DAY
     Route: 065
  2. VORTIOXETINE [Concomitant]
     Active Substance: VORTIOXETINE
     Indication: Persistent depressive disorder
     Dates: start: 20241128, end: 20250227

REACTIONS (1)
  - Aphantasia [Not Recovered/Not Resolved]

NARRATIVE: CASE EVENT DATE: 20250225
